FAERS Safety Report 11189164 (Version 1)
Quarter: 2015Q2

REPORT INFORMATION
  Report Type: Spontaneous
  Country: PL (occurrence: PL)
  Receive Date: 20150615
  Receipt Date: 20150615
  Transmission Date: 20150821
  Serious: Yes (Hospitalization)
  Sender: FDA-Public Use
  Company Number: PL-JNJFOC-20150602769

PATIENT
  Age: 37 Year
  Sex: Female

DRUGS (8)
  1. TORECAN [Concomitant]
     Active Substance: THIETHYLPERAZINE MALATE
     Indication: NAUSEA
     Route: 065
  2. MIDODRINE [Concomitant]
     Active Substance: MIDODRINE
     Dosage: 2X250 MG
     Route: 065
  3. ENCORTON [Concomitant]
     Active Substance: PREDNISONE
     Route: 065
  4. NOLPAZA [Concomitant]
     Active Substance: PANTOPRAZOLE SODIUM
     Dosage: IN THE MORNING ON AN EMPTY STOMACH
     Route: 065
  5. REMICADE [Suspect]
     Active Substance: INFLIXIMAB
     Indication: RHEUMATOID ARTHRITIS
     Route: 042
     Dates: start: 200905, end: 201010
  6. BISOCARD [Concomitant]
     Active Substance: BISOPROLOL
     Route: 065
  7. FOLIC ACID. [Concomitant]
     Active Substance: FOLIC ACID
     Route: 065
  8. CALPEROS D3 [Concomitant]
     Active Substance: CALCIUM CARBONATE\CHOLECALCIFEROL
     Dosage: 2X1 TAB
     Route: 065

REACTIONS (4)
  - Brain injury [Unknown]
  - Epilepsy [Recovered/Resolved]
  - Noninfective encephalitis [Unknown]
  - Rheumatoid arthritis [Unknown]

NARRATIVE: CASE EVENT DATE: 201403
